FAERS Safety Report 4538801-1 (Version None)
Quarter: 2004Q4

REPORT INFORMATION
  Report Type: 
  Country: None (occurrence: None)
  Receive Date: 20041223
  Receipt Date: 20040917
  Transmission Date: 20050328
  Serious: No
  Sender: FDA-Public Use
  Company Number: US-JNJFOC-20040906645

PATIENT
  Age: 45 Year
  Sex: Female
  Weight: 68.0396 kg

DRUGS (2)
  1. ORTHO EVRA [Suspect]
     Indication: CONTRACEPTION
     Dosage: 1 DOSE(S) , 3 IN 4 WEEK, TRANSDERMAL
     Route: 062
     Dates: start: 20040101
  2. ZERTEC (CETIRIZINE HYDROCHLORIDE) [Concomitant]

REACTIONS (1)
  - APPLICATION SITE DERMATITIS [None]
